FAERS Safety Report 5249877-0 (Version None)
Quarter: 2007Q1

REPORT INFORMATION
  Report Type: 
  Country: None (occurrence: None)
  Receive Date: 20070228
  Receipt Date: 20070202
  Transmission Date: 20070707
  Serious: Yes (Other)
  Sender: FDA-Public Use
  Company Number: FRWYE509705FEB07

PATIENT
  Age: 44 Year
  Sex: Male

DRUGS (3)
  1. ENBREL [Suspect]
     Indication: ANKYLOSING SPONDYLITIS
     Dosage: UNKNOWN
     Route: 058
     Dates: start: 20060101, end: 20060901
  2. DEPAKENE [Concomitant]
     Dosage: UNKNOWN
     Route: 048
  3. AVLOCARDYL [Concomitant]
     Indication: HYPERTENSION
     Dosage: UNKNOWN
     Route: 048
     Dates: start: 20000101

REACTIONS (3)
  - CAPILLARY LEAK SYNDROME [None]
  - DYSPNOEA [None]
  - OEDEMA PERIPHERAL [None]
